FAERS Safety Report 5173626-8 (Version None)
Quarter: 2006Q4

REPORT INFORMATION
  Report Type: 
  Country: None (occurrence: None)
  Receive Date: 20061214
  Receipt Date: 20061110
  Transmission Date: 20070319
  Serious: Yes (Hospitalization)
  Sender: FDA-Public Use
  Company Number: JP-ELI_LILLY_AND_COMPANY-JP200611002740

PATIENT
  Age: 68 Year
  Sex: Female
  Weight: 50.4 kg

DRUGS (2)
  1. EVISTA [Suspect]
     Indication: OSTEOPOROSIS
     Dosage: 60 MG, DAILY (1/D)
     Route: 048
     Dates: start: 20051130, end: 20061028
  2. APOLAKETE [Concomitant]
     Indication: URINARY INCONTINENCE
     Dosage: 200 MG, 3/D
     Route: 048
     Dates: start: 20060517, end: 20061028

REACTIONS (2)
  - HEPATITIS [None]
  - LIVER DISORDER [None]
